FAERS Safety Report 8262129-X (Version None)
Quarter: 2012Q2

REPORT INFORMATION
  Report Type: 
  Country: None (occurrence: None)
  Receive Date: 20120405
  Receipt Date: 20120403
  Transmission Date: 20120825
  Serious: Yes (Other)
  Sender: FDA-Public Use
  Company Number: PHEH2012US001836

PATIENT
  Sex: Female

DRUGS (5)
  1. SIMVASTATIN [Concomitant]
     Dosage: 10 MG, DAILY
  2. BENAZEPRIL HYDROCHLORIDE [Concomitant]
     Dosage: 40 MG, DAILY
  3. TASIGNA [Suspect]
     Indication: CHRONIC MYELOID LEUKAEMIA
     Dosage: 300 MG, QD
     Dates: start: 20111114, end: 20120117
  4. ASPIRIN [Concomitant]
  5. LASIX [Concomitant]
     Dosage: 40 MG, BID

REACTIONS (4)
  - BUNDLE BRANCH BLOCK RIGHT [None]
  - ELECTROCARDIOGRAM QT PROLONGED [None]
  - ATRIOVENTRICULAR BLOCK [None]
  - BUNDLE BRANCH BLOCK LEFT [None]
